FAERS Safety Report 20098730 (Version 1)
Quarter: 2021Q4

REPORT INFORMATION
  Report Type: Spontaneous
  Country: US (occurrence: US)
  Receive Date: 20211122
  Receipt Date: 20211122
  Transmission Date: 20220303
  Serious: No
  Sender: FDA-Public Use
  Company Number: US-SA-SAC20211119001112

PATIENT

DRUGS (1)
  1. CERDELGA [Suspect]
     Active Substance: ELIGLUSTAT
     Dosage: UNK
     Route: 065
     Dates: start: 20211015

REACTIONS (10)
  - Constipation [Unknown]
  - Rash [Unknown]
  - Palpitations [Unknown]
  - Cough [Recovered/Resolved]
  - Rhinorrhoea [Recovered/Resolved]
  - Eye pruritus [Recovered/Resolved]
  - Chest pain [Recovered/Resolved]
  - Gait disturbance [Not Recovered/Not Resolved]
  - Dizziness [Unknown]
  - Extra dose administered [Unknown]
